FAERS Safety Report 10011802 (Version 2)
Quarter: 2014Q1

REPORT INFORMATION
  Report Type: Report from Study
  Country: US (occurrence: US)
  Receive Date: 20140314
  Receipt Date: 20140314
  Transmission Date: 20141002
  Serious: Yes (Other)
  Sender: FDA-Public Use
  Company Number: US-TEVA-377211USA

PATIENT
  Age: 26 Year
  Sex: Female

DRUGS (1)
  1. CLARAVIS [Suspect]
     Indication: ACNE CYSTIC

REACTIONS (2)
  - Self-injurious ideation [Recovered/Resolved]
  - Depression [Recovered/Resolved]
